FAERS Safety Report 7920343-4 (Version None)
Quarter: 2011Q4

REPORT INFORMATION
  Report Type: 
  Country: None (occurrence: None)
  Receive Date: 20111117
  Receipt Date: 20111107
  Transmission Date: 20120403
  Serious: Yes (Other)
  Sender: FDA-Public Use
  Company Number: US-ELI_LILLY_AND_COMPANY-US201111003241

PATIENT
  Sex: Female

DRUGS (2)
  1. PROZAC [Suspect]
     Indication: DYSTHYMIC DISORDER
     Dosage: 40 MG, QD
     Dates: start: 19960101, end: 20110501
  2. CYMBALTA [Suspect]
     Indication: DYSTHYMIC DISORDER
     Dosage: 60 MG, QD

REACTIONS (4)
  - MEDICAL DEVICE COMPLICATION [None]
  - CHEMOTHERAPY [None]
  - INFUSION SITE EXTRAVASATION [None]
  - NEURALGIA [None]
